FAERS Safety Report 5915666-4 (Version None)
Quarter: 2008Q4

REPORT INFORMATION
  Report Type: 
  Country: None (occurrence: None)
  Receive Date: 20081010
  Receipt Date: 20081003
  Transmission Date: 20090506
  Serious: Yes (Other)
  Sender: FDA-Public Use
  Company Number: CH-PFIZER INC-2008079833

PATIENT
  Sex: Female
  Weight: 62 kg

DRUGS (3)
  1. LYRICA [Suspect]
     Indication: ABDOMINAL PAIN
     Route: 048
     Dates: start: 20080823, end: 20080830
  2. MORPHINE SULFATE [Concomitant]
     Route: 048
  3. VOLTAREN [Concomitant]

REACTIONS (1)
  - DEPRESSION [None]
